FAERS Safety Report 5774381-0 (Version None)
Quarter: 2008Q2

REPORT INFORMATION
  Report Type: 
  Country: None (occurrence: None)
  Receive Date: 20080616
  Receipt Date: 20080604
  Transmission Date: 20081010
  Serious: Yes (Hospitalization, Other)
  Sender: FDA-Public Use
  Company Number: US-PFIZER INC-2008029810

PATIENT
  Sex: Female
  Weight: 93 kg

DRUGS (9)
  1. LYRICA [Interacting]
     Indication: FIBROMYALGIA
     Dates: start: 20080101, end: 20080401
  2. LYRICA [Interacting]
     Indication: NEURALGIA
  3. NEURONTIN [Suspect]
  4. CYMBALTA [Interacting]
  5. METFORMIN HCL [Concomitant]
     Indication: DIABETES MELLITUS
  6. SIMVASTATIN [Concomitant]
     Indication: HYPERCHOLESTEROLAEMIA
  7. ATENOLOL [Concomitant]
     Dosage: DAILY DOSE:75MG
  8. HYDROCHLOROTHIAZIDE [Concomitant]
  9. MICARDIS [Concomitant]

REACTIONS (29)
  - ANTICHOLINERGIC SYNDROME [None]
  - ANXIETY [None]
  - DISTURBANCE IN ATTENTION [None]
  - DIZZINESS [None]
  - DRUG INTERACTION [None]
  - ENDOCRINE DISORDER [None]
  - EUPHORIC MOOD [None]
  - FIBROMYALGIA [None]
  - HALLUCINATION [None]
  - HYPERHIDROSIS [None]
  - HYPERTENSION [None]
  - HYPERTONIA [None]
  - INSOMNIA [None]
  - MENTAL STATUS CHANGES [None]
  - MIGRAINE WITH AURA [None]
  - MOOD ALTERED [None]
  - MYOCLONUS [None]
  - NAUSEA [None]
  - NERVOUS SYSTEM DISORDER [None]
  - NEUROLOGICAL SYMPTOM [None]
  - NIGHTMARE [None]
  - NYSTAGMUS [None]
  - OSTEOARTHRITIS [None]
  - PHAEOCHROMOCYTOMA [None]
  - SEROTONIN SYNDROME [None]
  - SOMNOLENCE [None]
  - SPEECH DISORDER [None]
  - TACHYCARDIA [None]
  - TREMOR [None]
